FAERS Safety Report 4330733-7 (Version None)
Quarter: 2004Q2

REPORT INFORMATION
  Report Type: 
  Country: None (occurrence: None)
  Receive Date: 20040401
  Receipt Date: 20040401
  Transmission Date: 20050107
  Serious: Yes (Hospitalization)
  Sender: FDA-Public Use
  Company Number: None

PATIENT
  Sex: Female

DRUGS (2)
  1. ARSENIC TRISENOX [Suspect]
     Indication: METASTATIC MALIGNANT MELANOMA
     Dosage: 12 MG QD IV 2/23-2/27 EVERY HEMG Q MON+ THURS 3/1-3/22
     Route: 042
     Dates: start: 20040223, end: 20040322
  2. ASCORBIC ACID [Suspect]
     Indication: METASTATIC MALIGNANT MELANOMA
     Dosage: 1000 MG QD IV 2/23-2/27 THEN Q MON+THURS IV
     Route: 042
     Dates: start: 20040223, end: 20040322

REACTIONS (3)
  - CENTRAL NERVOUS SYSTEM NEOPLASM [None]
  - DISEASE PROGRESSION [None]
  - GRAND MAL CONVULSION [None]
